FAERS Safety Report 7001194-4 (Version None)
Quarter: 2010Q3

REPORT INFORMATION
  Report Type: 
  Country: None (occurrence: None)
  Receive Date: 20100920
  Receipt Date: 20070720
  Transmission Date: 20110219
  Serious: No
  Sender: FDA-Public Use
  Company Number: US-ASTRAZENECA-2006UW06526

PATIENT
  Age: 371 Month
  Sex: Female
  Weight: 136.1 kg

DRUGS (17)
  1. SEROQUEL [Suspect]
     Indication: DEPRESSION
     Dosage: 25 MG TO 200 MG, 50 MG,100 MG 2 OR 3 TABLETS, H.S
     Route: 048
     Dates: start: 20000801
  2. SEROQUEL [Suspect]
     Indication: ANXIETY
     Dosage: 25 MG TO 200 MG, 50 MG,100 MG 2 OR 3 TABLETS, H.S
     Route: 048
     Dates: start: 20000801
  3. ZYPREXA [Concomitant]
     Dates: start: 20031201
  4. ZOLOFT [Concomitant]
  5. XANAX [Concomitant]
  6. LITHIUM [Concomitant]
  7. NEURONTIN [Concomitant]
     Dates: start: 20030301
  8. PROZAC [Concomitant]
     Dates: start: 20030301
  9. BUSPAR [Concomitant]
     Dates: start: 20030301
  10. CELEXA [Concomitant]
     Dates: start: 20000801
  11. METHADONE HCL [Concomitant]
     Dosage: 100-120 MG
     Dates: start: 20000801
  12. CLONAZEPAM [Concomitant]
     Dosage: 0.5-1 MG
     Route: 048
     Dates: start: 20031101
  13. NAPROSYN [Concomitant]
     Indication: BACK PAIN
     Dosage: 500 ON P.R.N BASIS
     Route: 048
     Dates: start: 20031101
  14. TEMAZEPAM [Concomitant]
     Dates: start: 20040506
  15. SYMBYAX [Concomitant]
     Dosage: 12/25 MG, QD
     Dates: start: 20040501
  16. GLIPIZIDE [Concomitant]
     Dosage: 5 MG, A.M
     Dates: start: 20040506
  17. SOMA [Concomitant]
     Dosage: 350 MG, P.R.N
     Dates: start: 20040501

REACTIONS (2)
  - DIABETES MELLITUS [None]
  - DRUG EFFECT DECREASED [None]
